FAERS Safety Report 9310690 (Version 1)
Quarter: 2013Q2

REPORT INFORMATION
  Report Type: Report from Study
  Country: CA (occurrence: CA)
  Receive Date: 20130527
  Receipt Date: 20130527
  Transmission Date: 20140414
  Serious: Yes (Hospitalization)
  Sender: FDA-Public Use
  Company Number: CA-ROCHE-1127147

PATIENT
  Age: 57 Year
  Sex: Male
  Weight: 100 kg

DRUGS (5)
  1. ACTEMRA [Suspect]
     Indication: RHEUMATOID ARTHRITIS
     Route: 042
     Dates: start: 20120626, end: 20130417
  2. PREDNISONE [Suspect]
     Indication: RHEUMATOID ARTHRITIS
     Route: 065
     Dates: start: 201210
  3. PLAVIX [Concomitant]
  4. ASA [Concomitant]
  5. ADVIL [Concomitant]
     Route: 065

REACTIONS (8)
  - Oxygen saturation decreased [Recovering/Resolving]
  - Hepatic cancer [Not Recovered/Not Resolved]
  - Joint swelling [Recovered/Resolved]
  - Fluid retention [Recovering/Resolving]
  - Arthralgia [Not Recovered/Not Resolved]
  - Acne [Not Recovered/Not Resolved]
  - White blood cell count decreased [Unknown]
  - Localised infection [Unknown]
